FAERS Safety Report 16087596 (Version 1)
Quarter: 2019Q1

REPORT INFORMATION
  Report Type: Spontaneous
  Country: US (occurrence: US)
  Receive Date: 20190319
  Receipt Date: 20190319
  Transmission Date: 20190418
  Serious: No
  Sender: FDA-Public Use
  Company Number: US-GLAXOSMITHKLINE-US2019GSK047703

PATIENT

DRUGS (1)
  1. BENLYSTA [Suspect]
     Active Substance: BELIMUMAB
     Indication: PRODUCT USED FOR UNKNOWN INDICATION
     Dosage: UNK
     Route: 042
     Dates: start: 20190312

REACTIONS (9)
  - Photosensitivity reaction [Unknown]
  - Musculoskeletal pain [Unknown]
  - Skin fissures [Unknown]
  - Joint stiffness [Unknown]
  - Neck pain [Unknown]
  - Insomnia [Unknown]
  - Chest pain [Unknown]
  - Dry skin [Unknown]
  - Rash [Recovering/Resolving]

NARRATIVE: CASE EVENT DATE: 20190312
